FAERS Safety Report 12263145 (Version 1)
Quarter: 2016Q2

REPORT INFORMATION
  Report Type: Spontaneous
  Country: GB (occurrence: GB)
  Receive Date: 20160413
  Receipt Date: 20160413
  Transmission Date: 20160815
  Serious: Yes (Other)
  Sender: FDA-Public Use
  Company Number: GB-TEVA-649566ACC

PATIENT
  Age: 73 Year
  Sex: Male
  Weight: 83 kg

DRUGS (13)
  1. AQUEOUS CREAM [Concomitant]
     Dosage: APPLY AS NEEDED
     Dates: start: 20151019
  2. PREDNISOLONE. [Concomitant]
     Active Substance: PREDNISOLONE
     Dosage: 6 DOSAGE FORMS DAILY; RESCUE PACK
     Dates: start: 20160118, end: 20160125
  3. SYMBICORT [Concomitant]
     Active Substance: BUDESONIDE\FORMOTEROL FUMARATE DIHYDRATE
     Dosage: 4 DOSAGE FORMS DAILY;
     Dates: start: 20151019
  4. DOXYCYCLINE. [Concomitant]
     Active Substance: DOXYCYCLINE
     Indication: LOWER RESPIRATORY TRACT INFECTION
     Dosage: TWO NOW THEN ONE DAILY
     Dates: start: 20160315
  5. LOCERYL [Concomitant]
     Active Substance: AMOROLFINE HYDROCHLORIDE
     Dosage: APPLY AS DIRECTED
     Dates: start: 20160202, end: 20160216
  6. SALBUTAMOL [Concomitant]
     Active Substance: ALBUTEROL
     Route: 055
     Dates: start: 20151019
  7. TRIMETHOPRIM. [Concomitant]
     Active Substance: TRIMETHOPRIM
     Dosage: 2 DOSAGE FORMS DAILY;
     Dates: start: 20160226, end: 20160304
  8. TIOTROPIUM [Concomitant]
     Active Substance: TIOTROPIUM
     Dosage: 1 DOSAGE FORMS DAILY;
     Route: 055
     Dates: start: 20151019
  9. AMOXICILLIN. [Concomitant]
     Active Substance: AMOXICILLIN
     Dosage: 3 DOSAGE FORMS DAILY; RESCUE PACK
     Dates: start: 20160118, end: 20160123
  10. GAVISCON ADVANCE [Concomitant]
     Active Substance: POTASSIUM BICARBONATE\SODIUM ALGINATE
     Dosage: 5ML - 10ML 4 TIMES/DAY
     Dates: start: 20160304
  11. OMEPRAZOLE. [Concomitant]
     Active Substance: OMEPRAZOLE
     Dosage: 2 DOSAGE FORMS DAILY;
     Dates: start: 20160315
  12. PARACETAMOL [Concomitant]
     Active Substance: ACETAMINOPHEN
     Indication: ANALGESIC THERAPY
     Dosage: 4 DOSAGE FORMS DAILY; NO MORE THAN 8 IN 24HOURS
     Dates: start: 20160202, end: 20160301
  13. METRONIDAZOLE. [Suspect]
     Active Substance: METRONIDAZOLE
     Dates: start: 20160321

REACTIONS (1)
  - Joint swelling [Recovered/Resolved]

NARRATIVE: CASE EVENT DATE: 20160321
